FAERS Safety Report 16969215 (Version 2)
Quarter: 2019Q4

REPORT INFORMATION
  Report Type: Spontaneous
  Country: JP (occurrence: JP)
  Receive Date: 20191029
  Receipt Date: 20191122
  Transmission Date: 20200122
  Serious: Yes (Hospitalization, Other)
  Sender: FDA-Public Use
  Company Number: JP-ELI_LILLY_AND_COMPANY-JP201910011812AA

PATIENT
  Age: 48 Year
  Sex: Male
  Weight: 65 kg

DRUGS (11)
  1. DULOXETINE HYDROCHLORIDE. [Concomitant]
     Active Substance: DULOXETINE HYDROCHLORIDE
     Dosage: 20 MG
  2. INSULIN GLARGINE [Suspect]
     Active Substance: INSULIN GLARGINE
     Indication: DIABETES MELLITUS
     Dosage: 20 INTERNATIONAL UNIT, DAILY
     Route: 058
     Dates: end: 20190516
  3. BROTIZOLAM [Concomitant]
     Active Substance: BROTIZOLAM
     Dosage: 0.25 MG
  4. PITAVASTATIN CALCIUM [Concomitant]
     Active Substance: PITAVASTATIN CALCIUM
     Dosage: 60 MG
  5. HUMALOG [Suspect]
     Active Substance: INSULIN LISPRO
     Indication: DIABETES MELLITUS
     Dosage: 12 INTERNATIONAL UNIT, DAILY
     Route: 058
     Dates: end: 20190516
  6. METFORMIN [Suspect]
     Active Substance: METFORMIN HYDROCHLORIDE
     Dosage: 30000 MG
     Route: 065
     Dates: start: 20190516, end: 20190516
  7. SITAGLIPTIN PHOSPHATE [Concomitant]
     Active Substance: SITAGLIPTIN PHOSPHATE
     Dosage: 150 MG
     Dates: start: 20190516
  8. CELECOXIB. [Concomitant]
     Active Substance: CELECOXIB
     Dosage: 200 MG
  9. METFORMIN [Suspect]
     Active Substance: METFORMIN HYDROCHLORIDE
     Indication: DIABETES MELLITUS
     Dosage: UNK
     Route: 065
     Dates: end: 20190515
  10. EMPAGLIFLOZIN [Concomitant]
     Active Substance: EMPAGLIFLOZIN
     Dosage: 300 MG
     Dates: start: 20190516
  11. ESOMEPRAZOLE MAGNESIUM. [Concomitant]
     Active Substance: ESOMEPRAZOLE MAGNESIUM
     Dosage: 20 MG

REACTIONS (5)
  - Incorrect dose administered [Unknown]
  - Hypoglycaemia [Recovered/Resolved]
  - Pneumonia aspiration [Unknown]
  - Lactic acidosis [Recovered/Resolved]
  - Suicide attempt [Unknown]

NARRATIVE: CASE EVENT DATE: 20190516
